FAERS Safety Report 5376095-8 (Version None)
Quarter: 2007Q3

REPORT INFORMATION
  Report Type: 
  Country: None (occurrence: None)
  Receive Date: 20070702
  Receipt Date: 20070629
  Transmission Date: 20080115
  Serious: Yes (Other)
  Sender: FDA-Public Use
  Company Number: A0658226A

PATIENT
  Age: 75 Year
  Sex: Male

DRUGS (3)
  1. AVODART [Suspect]
     Indication: BENIGN PROSTATIC HYPERPLASIA
     Dosage: .5MG PER DAY
     Route: 048
     Dates: start: 20060701, end: 20070619
  2. TIMOLOL MALEATE [Concomitant]
  3. UNSPECIFIED MEDICATION [Concomitant]

REACTIONS (6)
  - ASTHENIA [None]
  - CATARACT [None]
  - HYPOTRICHOSIS [None]
  - INTRAOCULAR PRESSURE INCREASED [None]
  - NIGHT BLINDNESS [None]
  - PLATELET COUNT DECREASED [None]
